FAERS Safety Report 4549101-8 (Version None)
Quarter: 2005Q1

REPORT INFORMATION
  Report Type: 
  Country: None (occurrence: None)
  Receive Date: 20041227
  Receipt Date: 20040916
  Transmission Date: 20050727
  Serious: No
  Sender: FDA-Public Use
  Company Number: 04P-163-0273725-00

PATIENT
  Age: 84 Year
  Sex: Male

DRUGS (1)
  1. HUMIRA [Suspect]
     Indication: RHEUMATOID ARTHRITIS
     Dosage: 40 MG, 1 IN 2 WK, SUBCUTANEOUS
     Route: 058
     Dates: start: 20031001

REACTIONS (1)
  - RHEUMATOID ARTHRITIS [None]
